FAERS Safety Report 7809382-1 (Version None)
Quarter: 2011Q4

REPORT INFORMATION
  Report Type: 
  Country: None (occurrence: None)
  Receive Date: 20111012
  Receipt Date: 20111006
  Transmission Date: 20120403
  Serious: Yes (Hospitalization, Other)
  Sender: FDA-Public Use
  Company Number: CZ-ABBOTT-11P-217-0860925-00

PATIENT
  Sex: Female
  Weight: 74 kg

DRUGS (4)
  1. CLARITHROMYCIN [Suspect]
     Indication: PNEUMONIA
     Dates: start: 20110924, end: 20110929
  2. CLARITHROMYCIN [Suspect]
  3. AMOXICILLIN [Concomitant]
     Indication: PRODUCT USED FOR UNKNOWN INDICATION
  4. CLARITHROMYCIN [Suspect]
     Indication: INFLAMMATORY MARKER INCREASED

REACTIONS (3)
  - LIVER DISORDER [None]
  - LIVER FUNCTION TEST ABNORMAL [None]
  - CHOLESTASIS [None]
